FAERS Safety Report 14638965 (Version 1)
Quarter: 2018Q1

REPORT INFORMATION
  Report Type: Report from Study
  Country: US (occurrence: US)
  Receive Date: 20180315
  Receipt Date: 20180315
  Transmission Date: 20180509
  Serious: No
  Sender: FDA-Public Use
  Company Number: US-ALEXION PHARMACEUTICALS INC.-A201802088

PATIENT
  Sex: Female

DRUGS (1)
  1. STRENSIQ [Suspect]
     Active Substance: ASFOTASE ALFA
     Indication: HYPOPHOSPHATASIA
     Dosage: UNK, TIW
     Route: 058

REACTIONS (3)
  - Nasopharyngitis [Not Recovered/Not Resolved]
  - Headache [Recovered/Resolved]
  - Fatigue [Not Recovered/Not Resolved]

NARRATIVE: CASE EVENT DATE: 20180219
